FAERS Safety Report 21815807 (Version 1)
Quarter: 2023Q1

REPORT INFORMATION
  Report Type: Spontaneous
  Country: US (occurrence: US)
  Receive Date: 20230104
  Receipt Date: 20230104
  Transmission Date: 20230417
  Serious: Yes (Hospitalization, Other)
  Sender: FDA-Public Use
  Company Number: US-BRISTOL-MYERS SQUIBB COMPANY-2023-001049

PATIENT
  Age: 84 Year
  Sex: Male

DRUGS (1)
  1. REVLIMID [Suspect]
     Active Substance: LENALIDOMIDE
     Indication: Plasma cell myeloma
     Dosage: FREQ: 21
     Dates: start: 20140109

REACTIONS (4)
  - Atrial fibrillation [Unknown]
  - Chest pain [Unknown]
  - Neck pain [Unknown]
  - Back pain [Unknown]

NARRATIVE: CASE EVENT DATE: 20221216
